FAERS Safety Report 6348051-4 (Version None)
Quarter: 2009Q3

REPORT INFORMATION
  Report Type: 
  Country: None (occurrence: None)
  Receive Date: 20090908
  Receipt Date: 20090902
  Transmission Date: 20100115
  Serious: Yes (Other)
  Sender: FDA-Public Use
  Company Number: GXKR2009DE09795

PATIENT
  Sex: Female

DRUGS (1)
  1. SOTALOL HCL [Suspect]

REACTIONS (1)
  - HALLUCINATION [None]
